FAERS Safety Report 17266650 (Version 1)
Quarter: 2020Q1

REPORT INFORMATION
  Report Type: Spontaneous
  Country: US (occurrence: US)
  Receive Date: 20200113
  Receipt Date: 20200113
  Transmission Date: 20200409
  Serious: Yes (Hospitalization, Other)
  Sender: FDA-Public Use
  Company Number: None

PATIENT
  Age: 67 Year
  Sex: Female

DRUGS (18)
  1. TRAMADOL. [Concomitant]
     Active Substance: TRAMADOL
  2. METHOTREXATE. [Concomitant]
     Active Substance: METHOTREXATE
  3. VIT. D [Concomitant]
  4. CELECOXIB. [Concomitant]
     Active Substance: CELECOXIB
  5. HUMIRA [Suspect]
     Active Substance: ADALIMUMAB
     Indication: RHEUMATOID ARTHRITIS
     Dosage: ?          OTHER FREQUENCY:EVERY 2 WEEKS;?
     Route: 058
     Dates: start: 20181113
  6. CEFDINIR. [Concomitant]
     Active Substance: CEFDINIR
  7. METHYLPRED [Concomitant]
     Active Substance: METHYLPREDNISOLONE
  8. LOSARTAN POT [Concomitant]
     Active Substance: LOSARTAN POTASSIUM
  9. ATORVASTATIN [Concomitant]
     Active Substance: ATORVASTATIN
  10. VENTOLIN [Concomitant]
     Active Substance: ALBUTEROL SULFATE
  11. METFORMIN [Concomitant]
     Active Substance: METFORMIN HYDROCHLORIDE
  12. FOLIC ACID. [Concomitant]
     Active Substance: FOLIC ACID
  13. LEVOFLOXACIN. [Concomitant]
     Active Substance: LEVOFLOXACIN
  14. VENLAFAXINE [Concomitant]
     Active Substance: VENLAFAXINE HYDROCHLORIDE
  15. LEVOTHYROXINE. [Concomitant]
     Active Substance: LEVOTHYROXINE
  16. OMEPRAZOLE. [Concomitant]
     Active Substance: OMEPRAZOLE
  17. AMOX/K CLAV [Concomitant]
     Active Substance: AMOXICILLIN\CLAVULANATE POTASSIUM
  18. LEVEMIR [Concomitant]
     Active Substance: INSULIN DETEMIR

REACTIONS (1)
  - Respiratory tract infection [None]

NARRATIVE: CASE EVENT DATE: 20191226
